FAERS Safety Report 4622849-2 (Version None)
Quarter: 2005Q1

REPORT INFORMATION
  Report Type: 
  Country: None (occurrence: None)
  Receive Date: 20050330
  Receipt Date: 20050210
  Transmission Date: 20050727
  Serious: Yes (Hospitalization)
  Sender: FDA-Public Use
  Company Number: FR-GLAXOSMITHKLINE-B0371359A

PATIENT
  Age: 37 Year
  Sex: Male

DRUGS (5)
  1. AUGMENTIN '125' [Suspect]
     Dosage: 2G SINGLE DOSE
     Route: 042
     Dates: start: 20050128, end: 20050128
  2. ULTIVA [Suspect]
     Indication: GENERAL ANAESTHESIA
     Route: 042
     Dates: start: 20050128, end: 20050128
  3. DIPRIVAN [Suspect]
     Indication: GENERAL ANAESTHESIA
     Route: 042
     Dates: start: 20050128, end: 20050128
  4. ATARAX [Concomitant]
     Indication: PREMEDICATION
     Route: 065
     Dates: start: 20050128, end: 20050128
  5. XANAX [Concomitant]
     Indication: PREMEDICATION
     Route: 065
     Dates: start: 20050128, end: 20050128

REACTIONS (6)
  - ANAESTHETIC COMPLICATION [None]
  - ANAPHYLACTIC SHOCK [None]
  - BRONCHOSPASM [None]
  - GENERALISED ERYTHEMA [None]
  - HYPOTENSION [None]
  - TACHYCARDIA [None]
